FAERS Safety Report 5280579-0 (Version None)
Quarter: 2007Q1

REPORT INFORMATION
  Report Type: 
  Country: None (occurrence: None)
  Receive Date: 20070329
  Receipt Date: 20070322
  Transmission Date: 20070707
  Serious: Yes (Hospitalization, Other)
  Sender: FDA-Public Use
  Company Number: 2006UW26814

PATIENT
  Age: 82 Year
  Sex: Female
  Weight: 82.6 kg

DRUGS (7)
  1. ARIMIDEX [Suspect]
     Indication: BREAST CANCER FEMALE
     Route: 048
     Dates: start: 20040401, end: 20061201
  2. GLIPIZIDE [Concomitant]
     Route: 048
  3. NIFEDIPINE [Concomitant]
     Route: 048
  4. ATENOLOL [Concomitant]
     Route: 048
  5. DIOVAN HCT [Concomitant]
     Dosage: 160/25 MG
     Route: 048
  6. METFORMIN HCL [Concomitant]
     Route: 048
  7. LOVASTATIN [Concomitant]
     Route: 048

REACTIONS (5)
  - ARTHRALGIA [None]
  - ARTHRITIS [None]
  - GAIT DISTURBANCE [None]
  - PAIN [None]
  - PNEUMONIA [None]
